FAERS Safety Report 11103771 (Version 2)
Quarter: 2015Q3

REPORT INFORMATION
  Report Type: Spontaneous
  Country: DE (occurrence: None)
  Receive Date: 20150507
  Receipt Date: 20150813
  Transmission Date: 20151125
  Serious: Yes (Death, Life-Threatening, Hospitalization)
  Sender: FDA-Public Use
  Company Number: DE-H14001-15-00678

PATIENT
  Age: 24 Year
  Sex: Female
  Weight: 78 kg

DRUGS (1)
  1. CEFUROXIME (CEFUROXIME) (1.5 GRAM, UNKNOWN ) (CEFUROXIME) [Suspect]
     Active Substance: CEFUROXIME
     Indication: ANTIBIOTIC PROPHYLAXIS
     Route: 041
     Dates: start: 20150331, end: 2015

REACTIONS (3)
  - Anaphylactic reaction [None]
  - Brain injury [None]
  - Cardiac arrest [None]

NARRATIVE: CASE EVENT DATE: 2015
